FAERS Safety Report 10497570 (Version 3)
Quarter: 2014Q4

REPORT INFORMATION
  Report Type: Report from Study
  Country: FR (occurrence: FR)
  Receive Date: 20141006
  Receipt Date: 20141009
  Transmission Date: 20150528
  Serious: Yes (Disabling)
  Sender: FDA-Public Use
  Company Number: FR-ROCHE-1468074

PATIENT
  Age: 54 Year
  Sex: Male
  Weight: 86 kg

DRUGS (2)
  1. RITUXIMAB [Suspect]
     Active Substance: RITUXIMAB
     Indication: NON-HODGKIN^S LYMPHOMA
     Dosage: NEXT RITUXIMAB INFUSIONS WERE DONE ON FOLLOWING DATES 13/FEB/2014, 20/FEB/2014, 27/FEB/2014, 06/MAR/
     Route: 058
     Dates: start: 20140206, end: 20140820
  2. REVLIMID [Suspect]
     Active Substance: LENALIDOMIDE
     Indication: NON-HODGKIN^S LYMPHOMA
     Dosage: 21 DAYS OUT OF 1 MONTH
     Route: 048
     Dates: start: 20140207, end: 20140823

REACTIONS (1)
  - Optic neuropathy [Recovered/Resolved with Sequelae]

NARRATIVE: CASE EVENT DATE: 20140208
